FAERS Safety Report 21611540 (Version 1)
Quarter: 2022Q4

REPORT INFORMATION
  Report Type: Spontaneous
  Country: US (occurrence: None)
  Receive Date: 20221117
  Receipt Date: 20221117
  Transmission Date: 20230112
  Serious: Yes (Death, Hospitalization)
  Sender: FDA-Public Use
  Company Number: None

PATIENT
  Sex: Female
  Weight: 65.4 kg

DRUGS (3)
  1. CYTARABINE [Suspect]
     Active Substance: CYTARABINE
  2. DAUNORUBICIN [Concomitant]
     Active Substance: DAUNORUBICIN
  3. ONCASPAR [Concomitant]
     Active Substance: PEGASPARGASE

REACTIONS (12)
  - Multiple organ dysfunction syndrome [None]
  - Septic shock [None]
  - Respiratory failure [None]
  - Acute kidney injury [None]
  - Ischaemic hepatitis [None]
  - Cardiogenic shock [None]
  - Staphylococcus test positive [None]
  - Streptococcus test positive [None]
  - Klebsiella test positive [None]
  - Left ventricular dysfunction [None]
  - Cardiac ventricular thrombosis [None]
  - Haemorrhagic transformation stroke [None]

NARRATIVE: CASE EVENT DATE: 20221104
